FAERS Safety Report 7212432-7 (Version None)
Quarter: 2010Q4

REPORT INFORMATION
  Report Type: 
  Country: None (occurrence: None)
  Receive Date: 20101229
  Receipt Date: 20101213
  Transmission Date: 20110411
  Serious: Yes (Death, Hospitalization)
  Sender: FDA-Public Use
  Company Number: NC-ACCORD-005748

PATIENT
  Age: 26 Year
  Sex: Female

DRUGS (2)
  1. MYCOPHENOLATE MOFETIL [Suspect]
     Indication: LUPUS NEPHRITIS
     Dosage: 500.00-MG-2.00PER-1,0DAYS
  2. PREDNISOLONE [Suspect]
     Indication: LUPUS NEPHRITIS
     Dosage: 8.00-MG/KG-1.0DAYS

REACTIONS (6)
  - ANURIA [None]
  - CELLULITIS [None]
  - CONTINUOUS HAEMODIAFILTRATION [None]
  - MYOPATHY [None]
  - PSEUDOMONAL SEPSIS [None]
  - SEPTIC SHOCK [None]
